FAERS Safety Report 24987322 (Version 4)
Quarter: 2025Q3

REPORT INFORMATION
  Report Type: Spontaneous
  Country: US (occurrence: US)
  Receive Date: 20250219
  Receipt Date: 20250829
  Transmission Date: 20251021
  Serious: No
  Sender: PFIZER
  Company Number: US-PFIZER INC-PV202500018163

PATIENT
  Age: 41 Year
  Sex: Female

DRUGS (3)
  1. TUKYSA [Suspect]
     Active Substance: TUCATINIB
     Dosage: 150 MG TWICE DAILY
  2. XELODA [Suspect]
     Active Substance: CAPECITABINE
  3. XELODA [Suspect]
     Active Substance: CAPECITABINE

REACTIONS (5)
  - Cardiac disorder [Unknown]
  - Nausea [Unknown]
  - Diarrhoea [Unknown]
  - Rash [Unknown]
  - Eye disorder [Unknown]
